FAERS Safety Report 7496016-1 (Version None)
Quarter: 2011Q2

REPORT INFORMATION
  Report Type: 
  Country: None (occurrence: None)
  Receive Date: 20110523
  Receipt Date: 20110517
  Transmission Date: 20111010
  Serious: Yes (Disabling)
  Sender: FDA-Public Use
  Company Number: FR-SANOFI-AVENTIS-2011SA031283

PATIENT
  Age: 60 Year
  Sex: Female

DRUGS (7)
  1. AMIODARONE HCL [Concomitant]
     Dates: start: 20110201, end: 20110301
  2. KERLONE [Concomitant]
  3. MULTAQ [Suspect]
     Route: 048
     Dates: start: 20101101, end: 20110216
  4. MULTAQ [Suspect]
     Route: 048
     Dates: start: 20110301
  5. INDAPAMIDE [Concomitant]
  6. AMIODARONE HCL [Concomitant]
     Dates: start: 20070101, end: 20101101
  7. PREVISCAN [Concomitant]

REACTIONS (1)
  - ARTHRALGIA [None]
